FAERS Safety Report 20484033 (Version 1)
Quarter: 2022Q1

REPORT INFORMATION
  Report Type: Report from Study
  Country: US (occurrence: None)
  Receive Date: 20220217
  Receipt Date: 20220217
  Transmission Date: 20220423
  Serious: Yes (Other)
  Sender: FDA-Public Use
  Company Number: US-ROCHE-1143581

PATIENT
  Age: 67 Year
  Sex: Female
  Weight: 87.3 kg

DRUGS (7)
  1. TRASTUZUMAB [Suspect]
     Active Substance: TRASTUZUMAB
     Indication: Invasive breast carcinoma
     Dosage: INVESTIGATOR MAY CHOOSE Q 3 WEEKS OR Q 2 WEEKS DOSING?LAST DOSE ADMINISTER: 01/AUG/2012
     Route: 041
     Dates: start: 20120703
  2. TRASTUZUMAB [Suspect]
     Active Substance: TRASTUZUMAB
     Dosage: 30 MIN WEEKLY X 11 DOSES
     Route: 041
  3. TRASTUZUMAB [Suspect]
     Active Substance: TRASTUZUMAB
     Dosage: OVER 30-90 MIN ON DAY 1 Q 3 WKS UNTIL 1 YEAR AFTER 1ST TRASTUZUMAB DOSE
     Route: 041
  4. PACLITAXEL [Suspect]
     Active Substance: PACLITAXEL
     Indication: Invasive breast carcinoma
     Dosage: OVER 60 MIN, WEEKLY X 12 DOSES?LAST DOSE ADMINISTER:01/AUG/2012
     Route: 042
  5. CYCLOPHOSPHAMIDE [Suspect]
     Active Substance: CYCLOPHOSPHAMIDE
     Indication: Invasive breast carcinoma
     Dosage: OVER 30 MIN ON DAY 1 X 4 CYCLES?LAST ADMINISTER DATE:25/APR/2012
     Route: 042
  6. DOXORUBICIN [Suspect]
     Active Substance: DOXORUBICIN
     Indication: Invasive breast carcinoma
     Dosage: OVER 15 MIN ON DAY 1 X 4 CYCLES?LAST ADMINISTER DATE: 25/APR/2012
     Route: 042
  7. LASIX [Concomitant]
     Active Substance: FUROSEMIDE

REACTIONS (2)
  - Mitral valve disease [Recovering/Resolving]
  - Tricuspid valve disease [Recovering/Resolving]

NARRATIVE: CASE EVENT DATE: 20120817
